FAERS Safety Report 9520157 (Version 1)
Quarter: 2013Q1

REPORT INFORMATION
  Report Type: Spontaneous
  Country: US (occurrence: None)
  Receive Date: 20130305
  Receipt Date: 20130305
  Transmission Date: 20140127
  Serious: Yes (Other)
  Sender: FDA-Public Use
  Company Number: 163-21880-12010883

PATIENT
  Age: 66 Year
  Sex: Male

DRUGS (5)
  1. REVLIMID (LENALIDOMIDE) (CAPSULES) [Suspect]
     Indication: PLASMA CELL MYELOMA
     Dosage: DAILY X 21D/28D
     Route: 048
     Dates: start: 20111215, end: 20111230
  2. DEXAMETHASONE (DEXAMETHASONE) [Suspect]
     Indication: PLASMA CELL MYELOMA
  3. CITALOPRAM (CITALOPRAM) [Concomitant]
  4. PROCHLORPERAZINE (PROCHLORPERAZINE) [Concomitant]
  5. ATENOLOL (ATENOLOL) [Concomitant]

REACTIONS (3)
  - Haemoglobin decreased [None]
  - Neutropenia [None]
  - Platelet count decreased [None]
